FAERS Safety Report 23287984 (Version 3)
Quarter: 2024Q1

REPORT INFORMATION
  Report Type: Spontaneous
  Country: US (occurrence: US)
  Receive Date: 20231212
  Receipt Date: 20240125
  Transmission Date: 20240409
  Serious: Yes (Other)
  Sender: FDA-Public Use
  Company Number: US-PFIZER INC-202300422384

PATIENT
  Age: 71 Year
  Sex: Female
  Weight: 108.86 kg

DRUGS (2)
  1. PAXLOVID [Suspect]
     Active Substance: NIRMATRELVIR\RITONAVIR
     Indication: COVID-19 treatment
     Dosage: 150 MG/100 MG
     Dates: start: 20231106, end: 20231110
  2. LEVOTHYROXINE [Concomitant]
     Active Substance: LEVOTHYROXINE\LEVOTHYROXINE SODIUM
     Indication: Hypothyroidism
     Dosage: UNK

REACTIONS (10)
  - Bronchial secretion retention [Unknown]
  - Therapeutic product effect incomplete [Unknown]
  - Nasal congestion [Unknown]
  - Therapeutic response unexpected [Unknown]
  - Parosmia [Unknown]
  - Taste disorder [Unknown]
  - Paranasal sinus hypersecretion [Unknown]
  - Sensory disturbance [Unknown]
  - Cough [Unknown]
  - Dyspnoea [Unknown]

NARRATIVE: CASE EVENT DATE: 20231101
